FAERS Safety Report 6269181-1 (Version None)
Quarter: 2009Q3

REPORT INFORMATION
  Report Type: 
  Country: None (occurrence: None)
  Receive Date: 20090715
  Receipt Date: 20090529
  Transmission Date: 20100115
  Serious: Yes (Other)
  Sender: FDA-Public Use
  Company Number: DK-JNJFOC-20090702215

PATIENT
  Age: 48 Year
  Sex: Male

DRUGS (2)
  1. ITRACONAZOLE [Suspect]
     Indication: ASPERGILLOSIS
     Route: 065
  2. AMPHOTERICIN B [Suspect]
     Indication: ASPERGILLOSIS
     Route: 065

REACTIONS (2)
  - INFECTION [None]
  - PULMONARY FUNCTION TEST DECREASED [None]
